FAERS Safety Report 5513356-3 (Version None)
Quarter: 2007Q4

REPORT INFORMATION
  Report Type: 
  Country: None (occurrence: None)
  Receive Date: 20071112
  Receipt Date: 20071101
  Transmission Date: 20080405
  Serious: Yes (Other)
  Sender: FDA-Public Use
  Company Number: JP-PFIZER INC-2007088852

PATIENT
  Age: 66 Year
  Sex: Female

DRUGS (3)
  1. SALAZOPYRIN [Suspect]
     Indication: COLITIS ULCERATIVE
     Dosage: DAILY DOSE:2GRAM
     Route: 048
  2. AZANIN [Suspect]
     Route: 048
  3. DRUG, UNSPECIFIED [Concomitant]

REACTIONS (1)
  - PANCYTOPENIA [None]
